FAERS Safety Report 11265176 (Version 1)
Quarter: 2015Q3

REPORT INFORMATION
  Report Type: Spontaneous
  Country: IT (occurrence: IT)
  Receive Date: 20150713
  Receipt Date: 20150713
  Transmission Date: 20151125
  Serious: Yes (Hospitalization, Other)
  Sender: FDA-Public Use
  Company Number: IT-BRISTOL-MYERS SQUIBB COMPANY-BMS-2015-043905

PATIENT
  Age: 79 Year
  Sex: Male

DRUGS (2)
  1. RYTMONORM [Concomitant]
     Active Substance: PROPAFENONE
     Indication: PRODUCT USED FOR UNKNOWN INDICATION
     Route: 048
  2. COUMADIN [Suspect]
     Active Substance: WARFARIN SODIUM
     Indication: ATRIAL FIBRILLATION
     Dosage: 25 MG, QWK
     Route: 048
     Dates: start: 20120601, end: 20150618

REACTIONS (3)
  - Subdural haematoma [Recovering/Resolving]
  - Craniotomy [Unknown]
  - Injury [Unknown]

NARRATIVE: CASE EVENT DATE: 20150619
